FAERS Safety Report 17366655 (Version 1)
Quarter: 2020Q1

REPORT INFORMATION
  Report Type: Report from Study
  Country: MX (occurrence: MX)
  Receive Date: 20200204
  Receipt Date: 20200204
  Transmission Date: 20200409
  Serious: Yes (Hospitalization, Other)
  Sender: FDA-Public Use
  Company Number: MX-GILEAD-2020-0449572

PATIENT
  Age: 48 Year
  Sex: Female
  Weight: 42 kg

DRUGS (7)
  1. TACROLIMUS. [Concomitant]
     Active Substance: TACROLIMUS
  2. NITROFURANTOIN. [Concomitant]
     Active Substance: NITROFURANTOIN
  3. RIBAVIRIN. [Suspect]
     Active Substance: RIBAVIRIN
     Indication: HEPATITIS C
     Route: 065
  4. DACLATASVIR DIHYDROCHLORIDE [Suspect]
     Active Substance: DACLATASVIR DIHYDROCHLORIDE
     Indication: HEPATITIS C
     Dosage: 60 MG, QD
     Route: 048
     Dates: start: 20170317
  5. OMEPRAZOLE. [Concomitant]
     Active Substance: OMEPRAZOLE
     Indication: PRODUCT USED FOR UNKNOWN INDICATION
     Route: 065
  6. SOFOSBUVIR [Suspect]
     Active Substance: SOFOSBUVIR
     Indication: HEPATITIS C
     Route: 065
  7. PREDNISONE. [Concomitant]
     Active Substance: PREDNISONE

REACTIONS (5)
  - Jaundice [Recovering/Resolving]
  - Liver transplant rejection [Unknown]
  - Varicella [Recovering/Resolving]
  - Hyperbilirubinaemia [Recovering/Resolving]
  - Urinary tract infection [Unknown]

NARRATIVE: CASE EVENT DATE: 201704
